FAERS Safety Report 6542341-8 (Version None)
Quarter: 2010Q1

REPORT INFORMATION
  Report Type: 
  Country: None (occurrence: None)
  Receive Date: 20100119
  Receipt Date: 20090508
  Transmission Date: 20100710
  Serious: No
  Sender: FDA-Public Use
  Company Number: US-TYCO HEALTHCARE/MALLINCKRODT-T200901020

PATIENT
  Sex: Female
  Weight: 151.47 kg

DRUGS (9)
  1. HYDROMORPHONE [Suspect]
     Indication: ARTHRALGIA
     Dosage: 8 MG, Q 4 HOURS
     Route: 048
     Dates: start: 20090101
  2. HYDROMORPHONE [Concomitant]
     Dosage: TWO 4 MG TABS Q 4 HOURS
     Route: 048
     Dates: start: 20080101, end: 20090101
  3. METHADONE [Concomitant]
     Indication: ARTHRALGIA
     Dosage: 20 MG, BID
     Route: 048
  4. PREDNISONE [Concomitant]
     Indication: RHEUMATOID ARTHRITIS
     Dosage: 10 MG, QD
     Route: 048
  5. HYDROCHLOROTHIAZIDE [Concomitant]
     Indication: HYPERTENSION
     Dosage: 25 MG, QD
     Route: 048
  6. METHOTREXATE [Concomitant]
     Indication: RHEUMATOID ARTHRITIS
     Dosage: 25 MG, 8 PILLS WEEKLY
     Route: 048
  7. HUMIRA [Concomitant]
     Indication: RHEUMATOID ARTHRITIS
     Dosage: 40 MG, 2 X MONTH
     Route: 058
  8. MULTI-VIT [Concomitant]
     Dosage: UNK
  9. B COMPLEX WITH FOLIC ACID AND VITAMIN C [Concomitant]
     Dosage: UNK, DAILY

REACTIONS (2)
  - DRUG INEFFECTIVE [None]
  - DRUG SCREEN NEGATIVE [None]
